FAERS Safety Report 21448015 (Version 1)
Quarter: 2022Q4

REPORT INFORMATION
  Report Type: Spontaneous
  Country: DE (occurrence: DE)
  Receive Date: 20221012
  Receipt Date: 20221012
  Transmission Date: 20230112
  Serious: Yes (Hospitalization)
  Sender: FDA-Public Use
  Company Number: DE-ADRED-07748-01

PATIENT
  Age: 47 Year
  Sex: Male

DRUGS (2)
  1. MORPHINE [Suspect]
     Active Substance: MORPHINE
     Indication: Product used for unknown indication
     Dosage: 10 MG, ONCE AT THE FAMILY DOCTOR
     Route: 065
  2. PANTOPRAZOLE [Concomitant]
     Active Substance: PANTOPRAZOLE
     Indication: Product used for unknown indication
     Dosage: 40 MG, IF NECESSARY

REACTIONS (13)
  - Dizziness [Unknown]
  - Somnolence [Unknown]
  - Hypotension [Unknown]
  - Sinus bradycardia [Unknown]
  - Abdominal pain [Unknown]
  - Hypotension [Unknown]
  - Cognitive disorder [Unknown]
  - Fatigue [Unknown]
  - Angina pectoris [Unknown]
  - Gastric ulcer [Unknown]
  - Sinus arrhythmia [Unknown]
  - Bradycardia [Unknown]
  - Dyspnoea [Unknown]
